FAERS Safety Report 14027463 (Version 1)
Quarter: 2017Q3

REPORT INFORMATION
  Report Type: Spontaneous
  Country: IN (occurrence: IN)
  Receive Date: 20170929
  Receipt Date: 20170929
  Transmission Date: 20171128
  Serious: Yes (Other)
  Sender: FDA-Public Use
  Company Number: IN-VISTAPHARM, INC.-VER201709-000686

PATIENT
  Age: 40 Year
  Sex: Male

DRUGS (1)
  1. PHENYTOIN. [Suspect]
     Active Substance: PHENYTOIN
     Indication: SEIZURE
     Dosage: TABLET (TAKING FOR THE LAST 20 YEARS)

REACTIONS (1)
  - Pleomorphic adenoma [Recovered/Resolved]
